FAERS Safety Report 10230747 (Version 1)
Quarter: 2014Q2

REPORT INFORMATION
  Report Type: Spontaneous
  Country: US (occurrence: None)
  Receive Date: 20140610
  Receipt Date: 20140610
  Transmission Date: 20141212
  Serious: Yes (Hospitalization, Disabling)
  Sender: FDA-Public Use
  Company Number: None

PATIENT
  Age: 29 Year
  Sex: Male
  Weight: 121.56 kg

DRUGS (2)
  1. SERTRALINE 25 MG NOT AVAILABLE [Suspect]
     Indication: DEPRESSION
     Dosage: 1 TABLET ONCE DAILY TAKEN BY MOUTH
     Route: 048
     Dates: start: 20140522, end: 20140609
  2. HALOPERIDOL 10 MG [Suspect]
     Dosage: 1 TABLET TWICE DAILY TAKEN BY MOUTH
     Route: 048
     Dates: start: 20140522, end: 20140609

REACTIONS (5)
  - Hallucination [None]
  - Mental disorder [None]
  - Mood altered [None]
  - Agitation [None]
  - Confusional state [None]
